FAERS Safety Report 20438405 (Version 11)
Quarter: 2025Q1

REPORT INFORMATION
  Report Type: Spontaneous
  Country: US (occurrence: US)
  Receive Date: 20220207
  Receipt Date: 20250116
  Transmission Date: 20250408
  Serious: Yes (Hospitalization, Other)
  Sender: PFIZER
  Company Number: US-PFIZER INC-202200016371

PATIENT
  Age: 76 Year
  Sex: Female

DRUGS (4)
  1. XELJANZ [Suspect]
     Active Substance: TOFACITINIB CITRATE
     Indication: Colitis ulcerative
     Dosage: 10 MG, 2X/DAY
     Route: 048
  2. XELJANZ [Suspect]
     Active Substance: TOFACITINIB CITRATE
     Dosage: 5 MG, 2X/DAY (5 MG TABLET)
     Route: 048
  3. CITALOPRAM [Concomitant]
     Active Substance: CITALOPRAM
  4. VEVYE [Concomitant]
     Active Substance: CYCLOSPORINE

REACTIONS (5)
  - Blood sodium decreased [Unknown]
  - Lupus-like syndrome [Unknown]
  - Hip arthroplasty [Unknown]
  - Gastrointestinal disorder [Unknown]
  - Localised infection [Unknown]
